FAERS Safety Report 9973578 (Version 2)
Quarter: 2014Q1

REPORT INFORMATION
  Report Type: Report from Study
  Country: JP (occurrence: JP)
  Receive Date: 20140306
  Receipt Date: 20140306
  Transmission Date: 20141002
  Serious: Yes (Other)
  Sender: FDA-Public Use
  Company Number: JP-VERTEX PHARMACEUTICALS INC-AE-2012-006057

PATIENT
  Age: 65 Year
  Sex: Male

DRUGS (12)
  1. VX-950 (TELAPREVIR) [Suspect]
     Indication: CHRONIC HEPATITIS C
     Dosage: 2250 MG, QD
     Route: 048
     Dates: start: 20120301, end: 20120508
  2. RIBAVIRIN [Suspect]
     Indication: CHRONIC HEPATITIS C
     Dosage: 800 MG, QD
     Route: 048
     Dates: start: 20120301, end: 20120321
  3. RIBAVIRIN [Suspect]
     Dosage: 600 MG, QD
     Route: 048
     Dates: start: 20120322, end: 20120328
  4. RIBAVIRIN [Suspect]
     Dosage: 400 MG, QD
     Route: 048
     Dates: start: 20120329, end: 20120510
  5. RIBAVIRIN [Suspect]
     Dosage: 200 MG, QD
     Route: 048
     Dates: start: 20120607, end: 20120613
  6. RIBAVIRIN [Suspect]
     Dosage: 400 MG, QD
     Route: 048
     Dates: start: 20120614, end: 20120718
  7. RIBAVIRIN [Suspect]
     Dosage: 200 MG, QD
     Route: 048
     Dates: start: 20120719, end: 20120801
  8. PEGINTRON [Suspect]
     Indication: CHRONIC HEPATITIS C
     Dosage: 1.5 ?G/KG, QW
     Route: 058
     Dates: start: 20120301, end: 20120809
  9. FAMOTIDINE D [Concomitant]
     Dosage: 40 MG, QD
     Route: 048
     Dates: start: 20120301
  10. LENDORMIN D [Concomitant]
     Dosage: 0.25 MG, QD
     Route: 048
     Dates: start: 20120322, end: 20120718
  11. EPADEL-S [Concomitant]
     Dosage: 2 DF, QD
     Route: 048
     Dates: start: 20120531, end: 20120815
  12. LENDEM [Concomitant]
     Dosage: 0.25 MG, QD
     Route: 048
     Dates: start: 20120719

REACTIONS (1)
  - Skin exfoliation [Recovered/Resolved]
